FAERS Safety Report 14804472 (Version 1)
Quarter: 2018Q2

REPORT INFORMATION
  Report Type: Spontaneous
  Country: US (occurrence: US)
  Receive Date: 20180425
  Receipt Date: 20180425
  Transmission Date: 20180711
  Serious: No
  Sender: FDA-Public Use
  Company Number: US-TEVA-2018-US-872454

PATIENT
  Sex: Male

DRUGS (1)
  1. TESTOSTERONE CYPIONATE. [Suspect]
     Active Substance: TESTOSTERONE CYPIONATE

REACTIONS (3)
  - Injection site pain [Unknown]
  - Product quality issue [Unknown]
  - Injection site eczema [Unknown]

NARRATIVE: CASE EVENT DATE: 2018
